FAERS Safety Report 7630293-9 (Version None)
Quarter: 2011Q3

REPORT INFORMATION
  Report Type: 
  Country: None (occurrence: None)
  Receive Date: 20110722
  Receipt Date: 20110718
  Transmission Date: 20111222
  Serious: Yes (Other)
  Sender: FDA-Public Use
  Company Number: PHHY2011CA51555

PATIENT
  Sex: Male

DRUGS (1)
  1. DIAZEPAM [Suspect]
     Indication: CONVULSION
     Dosage: UNK
     Dates: start: 20090515, end: 20090521

REACTIONS (3)
  - ABNORMAL DREAMS [None]
  - AMNESIA [None]
  - HALLUCINATION [None]
